FAERS Safety Report 7303588-6 (Version None)
Quarter: 2011Q1

REPORT INFORMATION
  Report Type: 
  Country: None (occurrence: None)
  Receive Date: 20110221
  Receipt Date: 20110207
  Transmission Date: 20110831
  Serious: Yes (Hospitalization)
  Sender: FDA-Public Use
  Company Number: PHHY2011BE10834

PATIENT
  Sex: Male

DRUGS (4)
  1. ASAFLOW [Concomitant]
     Indication: HYPERTENSION
     Dosage: 80 MG, UNK
  2. FUROSEMIDE [Concomitant]
     Indication: HYPERTENSION
  3. RASILEZ [Suspect]
     Indication: HYPERTENSION
     Dosage: UNK
     Route: 048
     Dates: start: 20100601
  4. MOXONIDINE [Concomitant]
     Indication: HYPERTENSION
     Dosage: 0.6 MG, UNK

REACTIONS (7)
  - PRURITUS GENERALISED [None]
  - URTICARIA [None]
  - BRADYCARDIA [None]
  - VASCULITIS [None]
  - ARRHYTHMIA [None]
  - BLOOD PRESSURE INCREASED [None]
  - RASH MACULAR [None]
